FAERS Safety Report 8693843 (Version 3)
Quarter: 2012Q4

REPORT INFORMATION
  Report Type: 
  Country: JP (occurrence: JP)
  Receive Date: 20120731
  Receipt Date: 20120828
  Transmission Date: 20130627
  Serious: Yes (Hospitalization, Disabling)
  Sender: FDA-Public Use
  Company Number: JP-JNJFOC-20120712999

PATIENT
  Age: 80 Year
  Sex: Male
  Weight: 82 kg

DRUGS (12)
  1. XARELTO [Suspect]
     Indication: CEREBROVASCULAR ACCIDENT PROPHYLAXIS
     Route: 048
     Dates: start: 20120611, end: 20120624
  2. IMIDAFENACIN [Concomitant]
     Route: 048
  3. HALCION [Concomitant]
     Route: 048
  4. LENDORMIN [Concomitant]
     Route: 048
  5. OLMETEC [Concomitant]
     Route: 048
  6. BRUFEN [Concomitant]
     Route: 048
     Dates: start: 20120622, end: 20120628
  7. TELGIN-G [Concomitant]
     Route: 048
     Dates: start: 20120622, end: 20120628
  8. CODEINE [Concomitant]
     Route: 048
     Dates: start: 20120622, end: 20120628
  9. CLARITIN [Concomitant]
     Route: 048
     Dates: start: 20120622, end: 20120628
  10. UNASYN-S [Concomitant]
     Route: 050
     Dates: start: 20120723
  11. SULPERAZON [Concomitant]
     Route: 042
     Dates: start: 20120730
  12. MEROPENEM [Concomitant]
     Route: 042
     Dates: start: 20120801

REACTIONS (2)
  - Cerebral artery embolism [Recovering/Resolving]
  - Fall [Unknown]
